FAERS Safety Report 13593855 (Version 1)
Quarter: 2017Q2

REPORT INFORMATION
  Report Type: Spontaneous
  Country: US (occurrence: US)
  Receive Date: 20170530
  Receipt Date: 20170530
  Transmission Date: 20170830
  Serious: No
  Sender: FDA-Public Use
  Company Number: US-BRISTOL-MYERS SQUIBB COMPANY-BMS-2017-045985

PATIENT
  Sex: Male
  Weight: 199.5 kg

DRUGS (1)
  1. ELIQUIS [Suspect]
     Active Substance: APIXABAN
     Indication: PULMONARY EMBOLISM
     Dosage: 5 MG, BID
     Route: 048

REACTIONS (10)
  - Dyspnoea [Unknown]
  - Myalgia [Unknown]
  - Dysgeusia [Unknown]
  - Pain in extremity [Unknown]
  - Feeling abnormal [Unknown]
  - Back pain [Unknown]
  - Dizziness [Unknown]
  - Rash [Unknown]
  - Respiratory disorder [Unknown]
  - Urticaria [Unknown]
